FAERS Safety Report 5322508-7 (Version None)
Quarter: 2007Q2

REPORT INFORMATION
  Report Type: 
  Country: None (occurrence: None)
  Receive Date: 20070511
  Receipt Date: 20070426
  Transmission Date: 20071010
  Serious: Yes (Hospitalization)
  Sender: FDA-Public Use
  Company Number: US-AMGEN-US221946

PATIENT
  Sex: Female

DRUGS (2)
  1. ENBREL [Suspect]
     Indication: RHEUMATOID ARTHRITIS
     Route: 058
     Dates: start: 20041025
  2. METHOTREXATE [Concomitant]
     Route: 065
     Dates: start: 20040301, end: 20050201

REACTIONS (8)
  - BONE DENSITY DECREASED [None]
  - BRONCHITIS [None]
  - INJECTION SITE PAIN [None]
  - JOINT FLUID DRAINAGE [None]
  - KNEE ARTHROPLASTY [None]
  - PYREXIA [None]
  - SINUSITIS [None]
  - STEROID THERAPY [None]
